FAERS Safety Report 17585321 (Version 3)
Quarter: 2020Q2

REPORT INFORMATION
  Report Type: Spontaneous
  Country: NO (occurrence: NO)
  Receive Date: 20200326
  Receipt Date: 20200430
  Transmission Date: 20200713
  Serious: Yes (Hospitalization, Other)
  Sender: FDA-Public Use
  Company Number: NO-PFIZER INC-2020015558

PATIENT
  Age: 26 Year
  Sex: Female
  Weight: 58 kg

DRUGS (4)
  1. LEVAXIN [Concomitant]
     Active Substance: LEVOTHYROXINE SODIUM
     Dosage: 100 MG, DAILY, TAKEN FOR MORE THAN 10 YEARS
  2. EFEDRIN HCL [Concomitant]
     Dosage: 25 MG, DAILY, TAKEN FOR MORE THAN 10 YEARS
  3. NARDIL [Suspect]
     Active Substance: PHENELZINE SULFATE
     Indication: DEPRESSION
     Dosage: 15 MG, 3X/DAY THE FIRST 3 WEEKS
     Dates: start: 20170823, end: 201709
  4. NARDIL [Interacting]
     Active Substance: PHENELZINE SULFATE
     Indication: SOCIAL ANXIETY DISORDER
     Dosage: 30 MG, 2X/DAY (2 TABLETS MORNING AND 2 TABLETS EVENING)
     Dates: start: 201709

REACTIONS (29)
  - Shock [Unknown]
  - Depression [Not Recovered/Not Resolved]
  - Energy increased [Not Recovered/Not Resolved]
  - Crying [Unknown]
  - Blister [Not Recovered/Not Resolved]
  - Food interaction [Unknown]
  - Seizure [Not Recovered/Not Resolved]
  - Hallucination, auditory [Recovered/Resolved]
  - Serotonin syndrome [Unknown]
  - Hypersomnia [Not Recovered/Not Resolved]
  - Night sweats [Not Recovered/Not Resolved]
  - Headache [Unknown]
  - Anxiety [Not Recovered/Not Resolved]
  - Derealisation [Recovered/Resolved]
  - Hypertension [Unknown]
  - Syncope [Unknown]
  - Depression suicidal [Not Recovered/Not Resolved]
  - Candida infection [Not Recovered/Not Resolved]
  - Aphthous ulcer [Not Recovered/Not Resolved]
  - Hallucination, visual [Recovered/Resolved]
  - Hypotension [Not Recovered/Not Resolved]
  - Anal prolapse [Unknown]
  - Infection [Unknown]
  - Therapeutic product effect incomplete [Unknown]
  - Nightmare [Not Recovered/Not Resolved]
  - Urine odour abnormal [Not Recovered/Not Resolved]
  - Fatigue [Not Recovered/Not Resolved]
  - Urinary tract infection [Not Recovered/Not Resolved]
  - Abnormal dreams [Unknown]

NARRATIVE: CASE EVENT DATE: 2017
